FAERS Safety Report 8833373 (Version 2)
Quarter: 2012Q4

REPORT INFORMATION
  Report Type: 
  Country: FI (occurrence: FI)
  Receive Date: 20121010
  Receipt Date: 20121109
  Transmission Date: 20130627
  Serious: Yes (Hospitalization)
  Sender: FDA-Public Use
  Company Number: FI-ASTRAZENECA-2012SE76669

PATIENT
  Age: 71 Year
  Sex: Female

DRUGS (8)
  1. ENTOCORT [Suspect]
     Indication: CROHN^S DISEASE
     Route: 048
     Dates: start: 2010
  2. ENTOCORT [Suspect]
     Indication: CROHN^S DISEASE
     Route: 048
  3. ATACAND [Concomitant]
     Route: 048
  4. SIMVASTATIN [Concomitant]
  5. THYROXIN [Concomitant]
  6. ARTHRYL [Concomitant]
  7. NEXIUM [Concomitant]
     Route: 048
  8. VAGIFEM [Concomitant]

REACTIONS (3)
  - Asthenia [Unknown]
  - Haemoglobin decreased [Unknown]
  - Blood cortisol decreased [Recovered/Resolved]
